FAERS Safety Report 9528055 (Version 1)
Quarter: 2013Q3

REPORT INFORMATION
  Report Type: Spontaneous
  Country: IT (occurrence: IT)
  Receive Date: 20130917
  Receipt Date: 20130917
  Transmission Date: 20140515
  Serious: Yes (Other)
  Sender: FDA-Public Use
  Company Number: IT-JNJFOC-20130908110

PATIENT
  Sex: Female

DRUGS (2)
  1. TOPIRAMATE [Suspect]
     Indication: MIGRAINE PROPHYLAXIS
     Dosage: DOSE WAS WEEKLY INCREASED BY 25 MG UP TO TARGET DOSE 50 TO 100 MG/DAY, IN 2 EQUAL DIVIDED DOSES.
     Route: 048
  2. TOPIRAMATE [Suspect]
     Indication: MIGRAINE PROPHYLAXIS
     Route: 048

REACTIONS (3)
  - Cognitive disorder [Unknown]
  - Speech disorder [Unknown]
  - Aphasia [Unknown]
